FAERS Safety Report 6227705-4 (Version None)
Quarter: 2009Q2

REPORT INFORMATION
  Report Type: 
  Country: None (occurrence: None)
  Receive Date: 20090612
  Receipt Date: 20090603
  Transmission Date: 20091009
  Serious: Yes (Other)
  Sender: FDA-Public Use
  Company Number: B0578082A

PATIENT

DRUGS (1)
  1. NIQUITIN PATCH [Suspect]
     Indication: DRUG USE FOR UNKNOWN INDICATION
     Route: 062

REACTIONS (3)
  - HYPOTHYROIDISM [None]
  - METABOLIC DISORDER [None]
  - WEIGHT INCREASED [None]
